FAERS Safety Report 20639334 (Version 1)
Quarter: 2022Q1

REPORT INFORMATION
  Report Type: Spontaneous
  Country: DE (occurrence: DE)
  Receive Date: 20220326
  Receipt Date: 20220326
  Transmission Date: 20220423
  Serious: Yes (Other)
  Sender: FDA-Public Use
  Company Number: DE-LUPIN PHARMACEUTICALS INC.-2022-04124

PATIENT
  Age: 31 Year
  Sex: Male

DRUGS (4)
  1. SERTRALINE [Interacting]
     Active Substance: SERTRALINE HYDROCHLORIDE
     Indication: Drug therapy
     Dosage: 75 MG, QD
     Route: 065
  2. ARIPIPRAZOLE [Interacting]
     Active Substance: ARIPIPRAZOLE
     Indication: Drug therapy
     Dosage: 5 MG, QD
     Route: 065
  3. ACETYLCYSTEINE [Interacting]
     Active Substance: ACETYLCYSTEINE
     Indication: Psychiatric symptom
     Dosage: 600 MG, QD
     Route: 065
  4. ACETYLCYSTEINE [Interacting]
     Active Substance: ACETYLCYSTEINE
     Dosage: 1800 MILLIGRAM, QD, INCREASED UP TO A TARGET DOSE OF 1800MG DAILY
     Route: 065

REACTIONS (5)
  - Condition aggravated [Unknown]
  - Dermatillomania [Unknown]
  - Psychiatric symptom [Unknown]
  - Prader-Willi syndrome [Unknown]
  - Drug interaction [Unknown]
